FAERS Safety Report 5374427-8 (Version None)
Quarter: 2007Q2

REPORT INFORMATION
  Report Type: 
  Country: None (occurrence: None)
  Receive Date: 20070629
  Receipt Date: 20070617
  Transmission Date: 20071010
  Serious: Yes (Other)
  Sender: FDA-Public Use
  Company Number: TR-KINGPHARMUSA00001-K200700760

PATIENT

DRUGS (1)
  1. SEPTRA [Suspect]
     Indication: EAR INFECTION
     Dosage: 6-12 MG/KG / 30-60 MG/KG, QD
     Route: 048

REACTIONS (14)
  - ACUTE LYMPHOCYTIC LEUKAEMIA [None]
  - ANAEMIA [None]
  - ANOREXIA [None]
  - ASPIRATION BONE MARROW ABNORMAL [None]
  - BLOOD FOLATE DECREASED [None]
  - BLOOD SMEAR TEST ABNORMAL [None]
  - FATIGUE [None]
  - HEPATOMEGALY [None]
  - PALLOR [None]
  - SPLENOMEGALY [None]
  - SUBSTANCE ABUSE [None]
  - TACHYCARDIA [None]
  - THROMBOCYTOPENIA [None]
  - VITAMIN B12 DECREASED [None]
